FAERS Safety Report 6445216-8 (Version None)
Quarter: 2009Q4

REPORT INFORMATION
  Report Type: 
  Country: None (occurrence: None)
  Receive Date: 20091118
  Receipt Date: 20091111
  Transmission Date: 20100525
  Serious: Yes (Other)
  Sender: FDA-Public Use
  Company Number: CHPA2009JP21964

PATIENT
  Age: 35 Year
  Sex: Male

DRUGS (1)
  1. NICOTINELL GUM (NCH) [Suspect]
     Indication: SMOKING CESSATION THERAPY
     Dosage: 6 GUMS DAILY
     Dates: start: 20091106, end: 20091111

REACTIONS (1)
  - DEPRESSED MOOD [None]
